FAERS Safety Report 10777677 (Version 2)
Quarter: 2015Q1

REPORT INFORMATION
  Report Type: Spontaneous
  Country: US (occurrence: US)
  Receive Date: 20150209
  Receipt Date: 20150225
  Transmission Date: 20150721
  Serious: Yes (Hospitalization)
  Sender: FDA-Public Use
  Company Number: US-EISAI MEDICAL RESEARCH-E2090-03199-SPO-US

PATIENT
  Age: 36 Year
  Sex: Male
  Weight: 105.91 kg

DRUGS (4)
  1. LAMICTAL SR [Concomitant]
     Route: 048
  2. ZONEGRAN [Suspect]
     Active Substance: ZONISAMIDE
     Indication: EPILEPSY
     Route: 048
     Dates: start: 20111216
  3. LAMICTAL SR [Concomitant]
     Indication: SEIZURE
     Route: 048
     Dates: start: 201104
  4. VIMPAT [Concomitant]
     Active Substance: LACOSAMIDE
     Indication: SEIZURE
     Dosage: UNKNOWN
     Route: 048
     Dates: start: 201203

REACTIONS (12)
  - Dizziness [Not Recovered/Not Resolved]
  - Confusional state [Not Recovered/Not Resolved]
  - Amnesia [Not Recovered/Not Resolved]
  - Nausea [Recovered/Resolved]
  - Bradyphrenia [Not Recovered/Not Resolved]
  - Mood swings [Not Recovered/Not Resolved]
  - Diplopia [Recovered/Resolved]
  - Aphasia [Not Recovered/Not Resolved]
  - Somnolence [Not Recovered/Not Resolved]
  - Sleep disorder [Unknown]
  - Seizure [Recovered/Resolved]
  - Anxiety [Recovered/Resolved]

NARRATIVE: CASE EVENT DATE: 201112
